FAERS Safety Report 19470925 (Version 2)
Quarter: 2021Q4

REPORT INFORMATION
  Report Type: Report from Study
  Country: FR (occurrence: FR)
  Receive Date: 20210628
  Receipt Date: 20211201
  Transmission Date: 20220303
  Serious: No
  Sender: FDA-Public Use
  Company Number: FR-TAKEDA-2021TUS037391

PATIENT
  Age: 65 Year
  Sex: Female

DRUGS (24)
  1. TEDUGLUTIDE [Suspect]
     Active Substance: TEDUGLUTIDE
     Indication: Short-bowel syndrome
     Dosage: 2.0 MILLIGRAM, (0.05MG/KG), QD
     Route: 065
     Dates: start: 20160322, end: 20160920
  2. TEDUGLUTIDE [Suspect]
     Active Substance: TEDUGLUTIDE
     Indication: Short-bowel syndrome
     Dosage: 2.0 MILLIGRAM, (0.05MG/KG), QD
     Route: 065
     Dates: start: 20160322, end: 20160920
  3. TEDUGLUTIDE [Suspect]
     Active Substance: TEDUGLUTIDE
     Indication: Short-bowel syndrome
     Dosage: 2.0 MILLIGRAM, (0.05MG/KG), QD
     Route: 065
     Dates: start: 20160322, end: 20160920
  4. TEDUGLUTIDE [Suspect]
     Active Substance: TEDUGLUTIDE
     Indication: Short-bowel syndrome
     Dosage: 2.0 MILLIGRAM, (0.05MG/KG), QD
     Route: 065
     Dates: start: 20160322, end: 20160920
  5. TEDUGLUTIDE [Suspect]
     Active Substance: TEDUGLUTIDE
     Dosage: 1.8 MILLIGRAM, (0.05MG/KG), QD
     Route: 065
     Dates: start: 20160920, end: 20171130
  6. TEDUGLUTIDE [Suspect]
     Active Substance: TEDUGLUTIDE
     Dosage: 1.8 MILLIGRAM, (0.05MG/KG), QD
     Route: 065
     Dates: start: 20160920, end: 20171130
  7. TEDUGLUTIDE [Suspect]
     Active Substance: TEDUGLUTIDE
     Dosage: 1.8 MILLIGRAM, (0.05MG/KG), QD
     Route: 065
     Dates: start: 20160920, end: 20171130
  8. TEDUGLUTIDE [Suspect]
     Active Substance: TEDUGLUTIDE
     Dosage: 1.8 MILLIGRAM, (0.05MG/KG), QD
     Route: 065
     Dates: start: 20160920, end: 20171130
  9. TEDUGLUTIDE [Suspect]
     Active Substance: TEDUGLUTIDE
     Dosage: 1.6 MILLIGRAM, (0.05MG/KG), QD
     Route: 065
     Dates: start: 20171130, end: 20171209
  10. TEDUGLUTIDE [Suspect]
     Active Substance: TEDUGLUTIDE
     Dosage: 1.6 MILLIGRAM, (0.05MG/KG), QD
     Route: 065
     Dates: start: 20171130, end: 20171209
  11. TEDUGLUTIDE [Suspect]
     Active Substance: TEDUGLUTIDE
     Dosage: 1.6 MILLIGRAM, (0.05MG/KG), QD
     Route: 065
     Dates: start: 20171130, end: 20171209
  12. TEDUGLUTIDE [Suspect]
     Active Substance: TEDUGLUTIDE
     Dosage: 1.6 MILLIGRAM, (0.05MG/KG), QD
     Route: 065
     Dates: start: 20171130, end: 20171209
  13. TEDUGLUTIDE [Suspect]
     Active Substance: TEDUGLUTIDE
     Dosage: 1.6 MILLIGRAM, (0.05MG/KG), QD
     Route: 065
     Dates: start: 20171209, end: 20180103
  14. TEDUGLUTIDE [Suspect]
     Active Substance: TEDUGLUTIDE
     Dosage: 1.6 MILLIGRAM, (0.05MG/KG), QD
     Route: 065
     Dates: start: 20171209, end: 20180103
  15. TEDUGLUTIDE [Suspect]
     Active Substance: TEDUGLUTIDE
     Dosage: 1.6 MILLIGRAM, (0.05MG/KG), QD
     Route: 065
     Dates: start: 20171209, end: 20180103
  16. TEDUGLUTIDE [Suspect]
     Active Substance: TEDUGLUTIDE
     Dosage: 1.6 MILLIGRAM, (0.05MG/KG), QD
     Route: 065
     Dates: start: 20171209, end: 20180103
  17. TEDUGLUTIDE [Suspect]
     Active Substance: TEDUGLUTIDE
     Dosage: 1.6 MILLIGRAM, (0.05MG/KG), QD
     Route: 065
     Dates: start: 20180103
  18. TEDUGLUTIDE [Suspect]
     Active Substance: TEDUGLUTIDE
     Dosage: 1.6 MILLIGRAM, (0.05MG/KG), QD
     Route: 065
     Dates: start: 20180103
  19. TEDUGLUTIDE [Suspect]
     Active Substance: TEDUGLUTIDE
     Dosage: 1.6 MILLIGRAM, (0.05MG/KG), QD
     Route: 065
     Dates: start: 20180103
  20. TEDUGLUTIDE [Suspect]
     Active Substance: TEDUGLUTIDE
     Dosage: 1.6 MILLIGRAM, (0.05MG/KG), QD
     Route: 065
     Dates: start: 20180103
  21. ACLASTA [Concomitant]
     Active Substance: ZOLEDRONIC ACID
     Indication: Osteoporosis prophylaxis
     Dosage: 5.0 MG, ONCE A YEAR
     Route: 042
     Dates: start: 20200316
  22. WARFARIN SODIUM [Concomitant]
     Active Substance: WARFARIN SODIUM
     Indication: Prophylaxis
     Dosage: 20.50 MILLIGRAM, QD
     Route: 048
     Dates: start: 20200316
  23. NICOPATCH [Concomitant]
     Active Substance: NICOTINE
     Indication: Smoking cessation therapy
     Dosage: 21 MILLIGRAM, QD
     Route: 058
  24. MAGNESIUM CITRATE [Concomitant]
     Active Substance: MAGNESIUM CITRATE
     Indication: Supplementation therapy
     Dosage: 200 MILLIGRAM, BID
     Route: 048
     Dates: start: 20190218, end: 2020

REACTIONS (1)
  - Anxiety [Not Recovered/Not Resolved]

NARRATIVE: CASE EVENT DATE: 20160804
